FAERS Safety Report 12112952 (Version 1)
Quarter: 2016Q1

REPORT INFORMATION
  Report Type: Report from Study
  Country: DE (occurrence: DE)
  Receive Date: 20160225
  Receipt Date: 20160225
  Transmission Date: 20160526
  Serious: Yes (Hospitalization, Other)
  Sender: FDA-Public Use
  Company Number: DE-CELGENE-062-21880-11040038

PATIENT
  Age: 77 Year
  Sex: Female

DRUGS (62)
  1. FENTANYL. [Concomitant]
     Active Substance: FENTANYL
     Route: 048
     Dates: start: 20081228, end: 20081228
  2. BISOPROLOL [Concomitant]
     Active Substance: BISOPROLOL
     Indication: HYPERTENSION
     Route: 048
     Dates: start: 20081221, end: 20081231
  3. PANTOPRAZOLE [Concomitant]
     Active Substance: PANTOPRAZOLE SODIUM
     Dosage: 263 MILLIGRAM
     Route: 048
     Dates: start: 20090129, end: 20090204
  4. TETRAZEPAM [Concomitant]
     Active Substance: TETRAZEPAM
     Indication: TUMOUR PAIN
     Route: 048
     Dates: start: 20081221, end: 20081222
  5. TETRAZEPAM [Concomitant]
     Active Substance: TETRAZEPAM
     Dosage: 600 MILLIGRAM
     Route: 048
     Dates: start: 20081224, end: 20081231
  6. CEFIXIM [Concomitant]
     Active Substance: CEFIXIME
     Indication: BRONCHITIS
     Dosage: 1000 MILLIGRAM
     Route: 048
     Dates: start: 20081230, end: 20081231
  7. COTRIMOXAZOLE [Concomitant]
     Active Substance: SULFAMETHOXAZOLE\TRIMETHOPRIM
     Route: 048
     Dates: start: 20090218, end: 20090227
  8. FENTANYL. [Concomitant]
     Active Substance: FENTANYL
     Route: 048
     Dates: start: 20090216, end: 20090216
  9. MOVICOL [Concomitant]
     Active Substance: POLYETHYLENE GLYCOL 3350\POTASSIUM CHLORIDE\SODIUM BICARBONATE\SODIUM CHLORIDE
     Indication: CONSTIPATION
     Route: 048
     Dates: start: 20090129, end: 20090204
  10. FUROSEMIDE. [Concomitant]
     Active Substance: FUROSEMIDE
     Route: 041
     Dates: start: 20090224, end: 20090224
  11. THEOPHYLLINE [Concomitant]
     Active Substance: THEOPHYLLINE ANHYDROUS
     Indication: BRONCHITIS
     Dosage: 100 MILLIGRAM
     Route: 041
     Dates: start: 20081228, end: 20081231
  12. HALOPERIDOL. [Concomitant]
     Active Substance: HALOPERIDOL
     Indication: NAUSEA
     Route: 048
     Dates: start: 20090218, end: 20090218
  13. FENTANYL. [Concomitant]
     Active Substance: FENTANYL
     Route: 048
     Dates: start: 20090131, end: 20090131
  14. FENTANYL. [Concomitant]
     Active Substance: FENTANYL
     Route: 048
     Dates: start: 20090213, end: 20090213
  15. FENTANYL. [Concomitant]
     Active Substance: FENTANYL
     Route: 048
     Dates: start: 20090219, end: 20090219
  16. ENOXAPARIN [Concomitant]
     Active Substance: ENOXAPARIN
     Indication: THROMBOSIS PROPHYLAXIS
     Route: 058
     Dates: start: 20081222, end: 20081227
  17. NADROPARIN [Concomitant]
     Active Substance: NADROPARIN
     Indication: THROMBOSIS PROPHYLAXIS
     Route: 058
     Dates: start: 20081228, end: 20081231
  18. DIAZEPAM. [Concomitant]
     Active Substance: DIAZEPAM
     Route: 048
     Dates: start: 20081229, end: 20081231
  19. COTRIMOXAZOLE [Concomitant]
     Active Substance: SULFAMETHOXAZOLE\TRIMETHOPRIM
     Dosage: 5 MILLIGRAM
     Route: 048
     Dates: start: 20090202, end: 20090202
  20. COTRIMOXAZOLE [Concomitant]
     Active Substance: SULFAMETHOXAZOLE\TRIMETHOPRIM
     Dosage: 1012.6 MILLIGRAM
     Route: 048
     Dates: start: 20090204, end: 20090204
  21. CEFTRIAXON [Concomitant]
     Active Substance: CEFTRIAXONE
     Indication: INFECTION PROPHYLAXIS
     Route: 041
     Dates: start: 20081121, end: 20081221
  22. CEFTRIAXON [Concomitant]
     Active Substance: CEFTRIAXONE
     Route: 041
     Dates: start: 20081222, end: 20081229
  23. FENTANYL. [Concomitant]
     Active Substance: FENTANYL
     Route: 048
     Dates: start: 20090202, end: 20090202
  24. IODIDE [Concomitant]
     Route: 048
     Dates: start: 20090211, end: 20090227
  25. PANTOPRAZOLE [Concomitant]
     Active Substance: PANTOPRAZOLE SODIUM
     Indication: PROPHYLAXIS
     Route: 048
     Dates: start: 20081222, end: 20081231
  26. CORTISON [Concomitant]
     Active Substance: CORTISONE ACETATE
     Indication: BRONCHITIS
     Route: 048
     Dates: start: 20081222, end: 20081224
  27. SODIUM PICOSULFATE [Concomitant]
     Active Substance: SODIUM PICOSULFATE
     Indication: CONSTIPATION
     Route: 048
     Dates: start: 20090129, end: 20090204
  28. BISOPROLOL [Concomitant]
     Active Substance: BISOPROLOL
     Route: 048
     Dates: start: 20090211, end: 20090212
  29. REPROTEROL [Concomitant]
     Active Substance: REPROTEROL HYDROCHLORIDE
     Indication: BRONCHITIS
     Route: 041
     Dates: start: 20081223, end: 20081227
  30. NADROPARIN [Concomitant]
     Active Substance: NADROPARIN
     Route: 058
     Dates: start: 20090129, end: 20090204
  31. PREDNISOLONE. [Concomitant]
     Active Substance: PREDNISOLONE
     Route: 048
     Dates: start: 20081230, end: 20081231
  32. COTRIMOXAZOLE [Concomitant]
     Active Substance: SULFAMETHOXAZOLE\TRIMETHOPRIM
     Indication: INFECTION PROPHYLAXIS
     Dosage: 3 GRAM
     Route: 048
     Dates: start: 20090130, end: 20090130
  33. POTASSIUM IODIDE [Concomitant]
     Active Substance: POTASSIUM IODIDE
     Indication: THYROIDECTOMY
     Route: 048
     Dates: start: 20090129, end: 20090204
  34. DIMENHYDRINATE. [Concomitant]
     Active Substance: DIMENHYDRINATE
     Indication: NAUSEA
     Route: 041
     Dates: start: 20090219, end: 20090221
  35. DIMENHYDRINATE. [Concomitant]
     Active Substance: DIMENHYDRINATE
     Route: 041
     Dates: start: 20090224, end: 20090224
  36. TORASEMIDE [Concomitant]
     Active Substance: TORSEMIDE
     Indication: PROPHYLAXIS
     Route: 048
     Dates: start: 20090225, end: 20090227
  37. REVLIMID [Suspect]
     Active Substance: LENALIDOMIDE
     Route: 048
     Dates: start: 20081210, end: 20090202
  38. FENTANYL. [Concomitant]
     Active Substance: FENTANYL
     Indication: TUMOUR PAIN
     Route: 048
     Dates: start: 20081222, end: 20081222
  39. FENTANYL. [Concomitant]
     Active Substance: FENTANYL
     Route: 048
     Dates: start: 20081231, end: 20081231
  40. IODIDE [Concomitant]
     Indication: THYROIDECTOMY
     Route: 048
     Dates: start: 20081222, end: 20081231
  41. NADROPARIN [Concomitant]
     Active Substance: NADROPARIN
     Route: 058
     Dates: start: 20090223, end: 20090226
  42. METOCLOPRAMIDE. [Concomitant]
     Active Substance: METOCLOPRAMIDE
     Indication: NAUSEA
     Route: 048
     Dates: start: 20090201, end: 20090204
  43. DIMENHYDRINATE. [Concomitant]
     Active Substance: DIMENHYDRINATE
     Route: 041
     Dates: start: 20090223, end: 20090223
  44. LENOGRASTIM [Concomitant]
     Active Substance: LENOGRASTIM
     Indication: NEUTROPENIA
     Route: 058
     Dates: start: 20090218, end: 20090219
  45. HALOPERIDOL. [Concomitant]
     Active Substance: HALOPERIDOL
     Route: 048
     Dates: start: 20090219, end: 20090226
  46. BISOPROLOL [Concomitant]
     Active Substance: BISOPROLOL
     Route: 048
     Dates: start: 20090129, end: 20090204
  47. MOVICOL [Concomitant]
     Active Substance: POLYETHYLENE GLYCOL 3350\POTASSIUM CHLORIDE\SODIUM BICARBONATE\SODIUM CHLORIDE
     Route: 048
     Dates: start: 20090211, end: 20090214
  48. CORTISON [Concomitant]
     Active Substance: CORTISONE ACETATE
     Route: 048
     Dates: start: 20081225, end: 20081227
  49. FUROSEMIDE. [Concomitant]
     Active Substance: FUROSEMIDE
     Indication: PROPHYLAXIS
     Dosage: 400 MILLIGRAM
     Route: 048
     Dates: start: 20081224, end: 20081224
  50. TERBUTALINE [Concomitant]
     Active Substance: TERBUTALINE
     Indication: DYSPNOEA
     Dosage: 10 MILLIGRAM
     Route: 058
     Dates: start: 20081221, end: 20081221
  51. PREDNISOLONE. [Concomitant]
     Active Substance: PREDNISOLONE
     Indication: BRONCHITIS
     Route: 048
     Dates: start: 20081228, end: 20081229
  52. DIAZEPAM. [Concomitant]
     Active Substance: DIAZEPAM
     Indication: MYOTONIA
     Route: 048
     Dates: start: 20081228, end: 20081228
  53. COTRIMOXAZOLE [Concomitant]
     Active Substance: SULFAMETHOXAZOLE\TRIMETHOPRIM
     Route: 048
     Dates: start: 20090213, end: 20090216
  54. DIMENHYDRINATE. [Concomitant]
     Active Substance: DIMENHYDRINATE
     Route: 048
     Dates: start: 20090225, end: 20090225
  55. REVLIMID [Suspect]
     Active Substance: LENALIDOMIDE
     Indication: PLASMA CELL MYELOMA
     Route: 048
     Dates: start: 20081115, end: 20081209
  56. FENTANYL. [Concomitant]
     Active Substance: FENTANYL
     Route: 048
     Dates: start: 20090222, end: 20090222
  57. FENTANYL. [Concomitant]
     Active Substance: FENTANYL
     Route: 048
     Dates: start: 20090226, end: 20090226
  58. PANTOPRAZOLE [Concomitant]
     Active Substance: PANTOPRAZOLE SODIUM
     Route: 041
     Dates: start: 20090211, end: 20090227
  59. MOVICOL [Concomitant]
     Active Substance: POLYETHYLENE GLYCOL 3350\POTASSIUM CHLORIDE\SODIUM BICARBONATE\SODIUM CHLORIDE
     Indication: PROPHYLAXIS
     Dosage: 400 MILLIGRAM
     Route: 048
     Dates: start: 20081222, end: 20081231
  60. ACETYLCYSTEINE. [Concomitant]
     Active Substance: ACETYLCYSTEINE
     Indication: COUGH
     Route: 048
     Dates: start: 20081221, end: 20081227
  61. METAMIZOLE [Concomitant]
     Active Substance: METAMIZOLE
     Indication: TUMOUR PAIN
     Dosage: 400 MILLIGRAM
     Route: 048
     Dates: start: 20081224, end: 20081224
  62. HUMAN^S SANDOGLOBULIN [Concomitant]
     Indication: IMMUNODEFICIENCY
     Route: 041
     Dates: start: 20081230, end: 20081230

REACTIONS (8)
  - General physical health deterioration [Recovered/Resolved]
  - Mastoiditis [Recovered/Resolved]
  - Hypokalaemia [Recovered/Resolved]
  - Pancytopenia [Recovered/Resolved]
  - Dyspnoea [Recovered/Resolved]
  - Bronchitis [Recovered/Resolved]
  - Sepsis [Recovered/Resolved]
  - Bronchitis [Recovered/Resolved]

NARRATIVE: CASE EVENT DATE: 20081221
